FAERS Safety Report 4396207-2 (Version None)
Quarter: 2004Q3

REPORT INFORMATION
  Report Type: 
  Country: None (occurrence: None)
  Receive Date: 20040709
  Receipt Date: 20040629
  Transmission Date: 20050211
  Serious: Yes (Hospitalization)
  Sender: FDA-Public Use
  Company Number: KII-2001-0011809

PATIENT
  Age: 74 Year
  Sex: Male

DRUGS (3)
  1. OXYCONTIN [Suspect]
     Indication: PAIN
     Dosage: 60  MG, TID
  2. OXYCODONE HCL [Suspect]
     Indication: PAIN
     Dosage: 5 MG
  3. DIAZEPAM [Suspect]
     Dosage: 20 MG, DAILY

REACTIONS (2)
  - MEDICATION ERROR [None]
  - SEDATION [None]
